FAERS Safety Report 8299655-3 (Version None)
Quarter: 2012Q2

REPORT INFORMATION
  Report Type: 
  Country: None (occurrence: None)
  Receive Date: 20120419
  Receipt Date: 20120413
  Transmission Date: 20120825
  Serious: Yes (Hospitalization)
  Sender: FDA-Public Use
  Company Number: US-ELI_LILLY_AND_COMPANY-US201108003305

PATIENT
  Sex: Male

DRUGS (3)
  1. FORTEO [Suspect]
  2. FORTEO [Suspect]
     Dosage: UNK, UNKNOWN
  3. FORTEO [Suspect]
     Dosage: UNK, UNKNOWN

REACTIONS (5)
  - CATARACT [None]
  - ARTHRALGIA [None]
  - DRUG DOSE OMISSION [None]
  - PANCREATITIS RELAPSING [None]
  - INJECTION SITE ERYTHEMA [None]
